FAERS Safety Report 14343407 (Version 2)
Quarter: 2018Q2

REPORT INFORMATION
  Report Type: Report from Study
  Country: US (occurrence: US)
  Receive Date: 20180102
  Receipt Date: 20180403
  Transmission Date: 20180711
  Serious: Yes (Hospitalization)
  Sender: FDA-Public Use
  Company Number: US-TAKEDA-2017TUS027443

PATIENT
  Age: 55 Year
  Sex: Male
  Weight: 98.7 kg

DRUGS (3)
  1. BLINDED PLACEBO [Suspect]
     Active Substance: INVESTIGATIONAL PRODUCT
     Indication: CROHN^S DISEASE
     Dosage: 108 MG, Q2WEEKS
     Route: 058
     Dates: start: 20180119
  2. BLINDED VEDOLIZUMAB [Suspect]
     Active Substance: VEDOLIZUMAB
     Indication: CROHN^S DISEASE
     Dosage: 108 MG, Q2WEEKS
     Route: 058
     Dates: start: 20180119
  3. MLN0002 [Suspect]
     Active Substance: VEDOLIZUMAB
     Indication: CROHN^S DISEASE
     Dosage: 300 MG, Q2WEEKS
     Route: 042
     Dates: start: 20171130, end: 20171213

REACTIONS (1)
  - Atrial fibrillation [Recovering/Resolving]

NARRATIVE: CASE EVENT DATE: 20171222
